FAERS Safety Report 18264237 (Version 1)
Quarter: 2020Q3

REPORT INFORMATION
  Report Type: Spontaneous
  Country: US (occurrence: US)
  Receive Date: 20200914
  Receipt Date: 20200914
  Transmission Date: 20201103
  Serious: Yes (Other)
  Sender: FDA-Public Use
  Company Number: US-ABBVIE-20K-163-3561831-00

PATIENT
  Sex: Female

DRUGS (1)
  1. BIAXIN [Suspect]
     Active Substance: CLARITHROMYCIN
     Indication: PRODUCT USED FOR UNKNOWN INDICATION
     Route: 065

REACTIONS (13)
  - Long QT syndrome [Unknown]
  - Urinary tract infection [Unknown]
  - Hypertension [Unknown]
  - Gastrooesophageal reflux disease [Unknown]
  - Allergy to animal [Unknown]
  - Asthma [Unknown]
  - Epistaxis [Unknown]
  - Seasonal allergy [Unknown]
  - Immunodeficiency common variable [Unknown]
  - Rheumatoid arthritis [Unknown]
  - Rhinitis allergic [Unknown]
  - Sleep apnoea syndrome [Unknown]
  - Drug intolerance [Unknown]
